FAERS Safety Report 8288668-3 (Version None)
Quarter: 2012Q2

REPORT INFORMATION
  Report Type: 
  Country: None (occurrence: None)
  Receive Date: 20120417
  Receipt Date: 20120406
  Transmission Date: 20120825
  Serious: Yes (Life-Threatening, Other)
  Sender: FDA-Public Use
  Company Number: JP-BRISTOL-MYERS SQUIBB COMPANY-16504433

PATIENT
  Age: 47 Year
  Sex: Male

DRUGS (16)
  1. PENTOBARBITAL CALCIUM [Concomitant]
     Dosage: TABLET
  2. ABILIFY [Suspect]
     Indication: SCHIZOPHRENIA
     Dosage: 6MG:18JAN12-31JAN12, 12MG:01FEB12-ONG.
     Route: 048
     Dates: start: 20120118
  3. FLUNITRAZEPAM [Concomitant]
     Dosage: TABLET
  4. ALPRAZOLAM [Concomitant]
     Dosage: TABLET
  5. PAXIL [Concomitant]
     Dosage: TABLET
  6. CYMBALTA [Concomitant]
     Dosage: CAPS
     Dates: start: 20110630
  7. AMOBAN [Concomitant]
     Dosage: TABLET
  8. MUCOSTA [Concomitant]
     Dates: start: 20110805
  9. MIRTAZAPINE [Concomitant]
     Dosage: TABLET
     Dates: start: 20101201
  10. TRIHEXYPHENIDYL HCL [Concomitant]
     Dosage: TABLET
  11. LEVOMEPROMAZINE MALEATE [Concomitant]
  12. PROMETHAZINE HCL [Concomitant]
  13. RISPERDAL [Concomitant]
     Dosage: ORAL SOLUTION
     Dates: start: 20101201
  14. HALCION [Concomitant]
     Dosage: TABLET
  15. FERROUS CITRATE [Concomitant]
     Dates: start: 20110805
  16. LORAZEPAM [Concomitant]
     Dates: start: 20120209

REACTIONS (5)
  - PANCREATITIS CHRONIC [None]
  - EMPHYSEMA [None]
  - ALCOHOLIC LIVER DISEASE [None]
  - ASPHYXIA [None]
  - ALCOHOL ABUSE [None]
